FAERS Safety Report 7546702 (Version 5)
Quarter: 2013Q3

REPORT INFORMATION
  Report Type: Spontaneous
  Country: US (occurrence: US)
  Receive Date: 20100819
  Receipt Date: 20130930
  Transmission Date: 20140515
  Serious: Yes (Other)
  Sender: FDA-Public Use
  Company Number: US-BIOGENIDEC-2010BI027583

PATIENT
  Age: 73 Year
  Sex: Female

DRUGS (2)
  1. AVONEX [Suspect]
     Indication: MULTIPLE SCLEROSIS
     Route: 030
     Dates: start: 19970201, end: 200308
  2. AVONEX [Suspect]
     Indication: MULTIPLE SCLEROSIS
     Route: 030
     Dates: start: 200308

REACTIONS (12)
  - Cerebrovascular accident [Recovered/Resolved]
  - Musculoskeletal discomfort [Recovered/Resolved]
  - Joint swelling [Recovered/Resolved]
  - Musculoskeletal disorder [Unknown]
  - Pneumonia [Recovered/Resolved]
  - Stress [Unknown]
  - Balance disorder [Recovered/Resolved]
  - Insomnia [Recovered/Resolved]
  - Meniscus injury [Recovered/Resolved]
  - Gait disturbance [Recovered/Resolved]
  - Hypoaesthesia [Not Recovered/Not Resolved]
  - Muscular weakness [Not Recovered/Not Resolved]
